FAERS Safety Report 25097537 (Version 1)
Quarter: 2025Q1

REPORT INFORMATION
  Report Type: Spontaneous
  Country: US (occurrence: US)
  Receive Date: 20250320
  Receipt Date: 20250320
  Transmission Date: 20250408
  Serious: No
  Sender: Haleon PLC
  Company Number: US-HALEON-2233474

PATIENT
  Age: 19 Year
  Sex: Female

DRUGS (3)
  1. IBUPROFEN [Suspect]
     Active Substance: IBUPROFEN
     Indication: Injection site oedema
  2. IBUPROFEN [Suspect]
     Active Substance: IBUPROFEN
     Indication: Tenderness
  3. CETIRIZINE [Suspect]
     Active Substance: CETIRIZINE HYDROCHLORIDE
     Indication: Abscess

REACTIONS (1)
  - Drug ineffective [Unknown]
